FAERS Safety Report 10585941 (Version 1)
Quarter: 2014Q4

REPORT INFORMATION
  Report Type: Spontaneous
  Country: DE (occurrence: DE)
  Receive Date: 20141114
  Receipt Date: 20141114
  Transmission Date: 20150529
  Serious: Yes (Other)
  Sender: FDA-Public Use
  Company Number: GXKR2014DE004169

PATIENT
  Sex: Female

DRUGS (1)
  1. CLOZAPIN HEXAL [Suspect]
     Active Substance: CLOZAPINE
     Indication: DELUSION
     Route: 048

REACTIONS (1)
  - Immune thrombocytopenic purpura [Unknown]
